FAERS Safety Report 7540887-7 (Version None)
Quarter: 2011Q2

REPORT INFORMATION
  Report Type: 
  Country: None (occurrence: None)
  Receive Date: 20110610
  Receipt Date: 20110607
  Transmission Date: 20111010
  Serious: Yes (Death)
  Sender: FDA-Public Use
  Company Number: MX-SANOFI-AVENTIS-2011SA036181

PATIENT
  Age: 72 Year
  Sex: Female

DRUGS (4)
  1. ALL OTHER THERAPEUTIC PRODUCTS [Concomitant]
     Dates: end: 20110410
  2. DRUG USED IN DIABETES [Concomitant]
     Dates: end: 20110410
  3. PLAVIX [Suspect]
     Route: 048
     Dates: end: 20110410
  4. OTHER ANTIHYPERTENSIVES [Concomitant]
     Dates: end: 20110410

REACTIONS (1)
  - CARDIAC ARREST [None]
